FAERS Safety Report 4299391-4 (Version None)
Quarter: 2004Q1

REPORT INFORMATION
  Report Type: 
  Country: None (occurrence: None)
  Receive Date: 20040217
  Receipt Date: 20040129
  Transmission Date: 20041129
  Serious: Yes (Hospitalization)
  Sender: FDA-Public Use
  Company Number: DSA_23869_2004

PATIENT
  Age: 35 Year
  Sex: Female

DRUGS (4)
  1. LORAZEPAM [Suspect]
     Dosage: 16 TAB ONCE PO
     Route: 048
     Dates: start: 20040111, end: 20040111
  2. FLUANXOL [Suspect]
     Dosage: 2 TAB ONCE PO
     Route: 048
     Dates: start: 20040112, end: 20040112
  3. FLUOXETINE [Suspect]
     Dosage: 1 TAB ONCE PO
     Route: 048
     Dates: start: 20040112, end: 20040112
  4. NOCTAMID [Suspect]
     Dosage: 20 TAB ONCE PO
     Route: 048
     Dates: start: 20040112, end: 20040112

REACTIONS (5)
  - DEPRESSED LEVEL OF CONSCIOUSNESS [None]
  - INTENTIONAL OVERDOSE [None]
  - MULTIPLE DRUG OVERDOSE [None]
  - SOMNOLENCE [None]
  - TACHYCARDIA [None]
